FAERS Safety Report 25364299 (Version 1)
Quarter: 2025Q2

REPORT INFORMATION
  Report Type: Report from Study
  Country: FR (occurrence: FR)
  Receive Date: 20250527
  Receipt Date: 20250527
  Transmission Date: 20250717
  Serious: Yes (Other)
  Sender: ALEXION PHARMACEUTICALS
  Company Number: FR-AstraZeneca-2023A253308

PATIENT
  Age: 59 Year
  Weight: 110 kg

DRUGS (1)
  1. DURVALUMAB [Suspect]
     Active Substance: DURVALUMAB
     Indication: Non-small cell lung cancer

REACTIONS (3)
  - Hepatic cytolysis [Unknown]
  - Creatinine renal clearance decreased [Unknown]
  - Weight increased [Unknown]
